FAERS Safety Report 8249368 (Version 4)
Quarter: 2013Q3

REPORT INFORMATION
  Report Type: Spontaneous
  Country: AR (occurrence: AR)
  Receive Date: 20111117
  Receipt Date: 20130812
  Transmission Date: 20140515
  Serious: Yes (Death, Hospitalization)
  Sender: FDA-Public Use
  Company Number: AR-ROCHE-1013626

PATIENT
  Age: 86 Year
  Sex: Female

DRUGS (1)
  1. LUCENTIS [Suspect]
     Indication: MACULOPATHY
     Route: 050
     Dates: start: 201003

REACTIONS (4)
  - Cerebrovascular accident [Fatal]
  - Hip fracture [Recovering/Resolving]
  - Fall [Recovering/Resolving]
  - Emotional distress [Unknown]
